FAERS Safety Report 6610268-9 (Version None)
Quarter: 2010Q1

REPORT INFORMATION
  Report Type: 
  Country: None (occurrence: None)
  Receive Date: 20100302
  Receipt Date: 20100301
  Transmission Date: 20100710
  Serious: Yes (Other)
  Sender: FDA-Public Use
  Company Number: ES-ROXANE LABORATORIES, INC.-2010-RO-00214RO

PATIENT
  Age: 30 Year
  Sex: Female

DRUGS (7)
  1. DIAZEPAM [Suspect]
  2. RISPERIDONE [Suspect]
  3. RISPERIDONE [Suspect]
  4. LACTULOSE [Suspect]
  5. CLONAZEPAM [Suspect]
  6. BIPERIDEN HYDROCHLORIDE TAB [Concomitant]
     Indication: EXTRAPYRAMIDAL DISORDER
     Dosage: 3 MG
  7. QUETIAPINE [Concomitant]
     Indication: ABNORMAL BEHAVIOUR

REACTIONS (2)
  - DYSPHAGIA [None]
  - TARDIVE DYSKINESIA [None]
